FAERS Safety Report 8389200-6 (Version None)
Quarter: 2012Q2

REPORT INFORMATION
  Report Type: 
  Country: None (occurrence: None)
  Receive Date: 20120528
  Receipt Date: 20120525
  Transmission Date: 20120825
  Serious: Yes (Death, Hospitalization)
  Sender: FDA-Public Use
  Company Number: PHHY2011AU099801

PATIENT
  Sex: Male

DRUGS (4)
  1. VALPROIC ACID [Interacting]
  2. PERINDOPRIL ERBUMINE [Suspect]
  3. ANTIHYPERTENSIVES [Suspect]
  4. CLOZARIL [Interacting]
     Dosage: 300 MG
     Dates: start: 20050808

REACTIONS (5)
  - DEATH [None]
  - CELLULITIS [None]
  - RENAL FAILURE [None]
  - FALL [None]
  - DRUG INTERACTION [None]
